FAERS Safety Report 7550013-6 (Version None)
Quarter: 2011Q2

REPORT INFORMATION
  Report Type: 
  Country: None (occurrence: None)
  Receive Date: 20110615
  Receipt Date: 20110608
  Transmission Date: 20111010
  Serious: Yes (Other)
  Sender: FDA-Public Use
  Company Number: CA-ROXANE LABORATORIES, INC.-2011-RO-00797RO

PATIENT
  Age: 18 Year
  Sex: Female
  Weight: 89 kg

DRUGS (2)
  1. LOSARTAN POTASSIUM [Suspect]
     Indication: PROTEINURIA
  2. LOSARTAN POTASSIUM [Suspect]

REACTIONS (2)
  - DRUG INEFFECTIVE [None]
  - DIZZINESS [None]
